FAERS Safety Report 8134254-5 (Version None)
Quarter: 2012Q1

REPORT INFORMATION
  Report Type: 
  Country: None (occurrence: None)
  Receive Date: 20120201
  Receipt Date: 20120119
  Transmission Date: 20120608
  Serious: Yes (Other)
  Sender: FDA-Public Use
  Company Number: 2011028689

PATIENT
  Age: 51 Year
  Sex: Female
  Weight: 74.8435 kg

DRUGS (29)
  1. DEPAKOTE ER [Concomitant]
  2. PROMETHAZINE [Concomitant]
  3. PROBIOTIC (LACTOBACILLUS REUTERI) () [Concomitant]
  4. VITAMIN D [Concomitant]
  5. THYROID TAB [Concomitant]
  6. PRAZOSIN GITS [Concomitant]
  7. MULTIVITAMIN (MULTIVITAMIN /00831701/) () [Concomitant]
  8. TRAMADOL HCL [Concomitant]
  9. ATENOLOL [Concomitant]
  10. PATANOL [Concomitant]
  11. IMIPRAMINE [Concomitant]
  12. ASPIRIN [Concomitant]
  13. HIZENTRA [Suspect]
     Indication: HYPOGLOBULINAEMIA
     Dosage: SEE IMAGE
     Route: 058
     Dates: start: 20110502
  14. HIZENTRA [Suspect]
     Indication: HYPOGLOBULINAEMIA
     Dosage: SEE IMAGE
     Route: 058
     Dates: start: 20110119
  15. HIZENTRA [Suspect]
     Indication: HYPOGLOBULINAEMIA
     Dosage: SEE IMAGE
     Route: 058
     Dates: start: 20111201
  16. HIZENTRA [Suspect]
  17. ALENDRONATE SODIUM [Concomitant]
  18. XANAX [Concomitant]
  19. MAGNESIUM OXIDE (MAGNESIUM OXIDE) () [Concomitant]
  20. AMLODIPINE BESYLATE [Concomitant]
  21. HALOBETASOL (ULOBETASOL) () [Concomitant]
  22. AZITHROMYCIN [Concomitant]
  23. LISINOPRIL [Concomitant]
  24. VITAMIN B COMPLEX WITH VITAMIN C (VITAMIN B-COMPLEX WITH VITAMIN C) () [Concomitant]
  25. MELATONIN (MELATONIN) () [Concomitant]
  26. INTUNIV ER (GUANFACINE) () [Concomitant]
  27. IMITREX [Concomitant]
  28. LORAZEPAM [Concomitant]
  29. CLONIDINE [Concomitant]

REACTIONS (6)
  - HEADACHE [None]
  - GASTROINTESTINAL INFECTION [None]
  - SINUSITIS [None]
  - INFUSION SITE ERYTHEMA [None]
  - INFUSION SITE SWELLING [None]
  - COLITIS [None]
